FAERS Safety Report 4280407-6 (Version None)
Quarter: 2004Q1

REPORT INFORMATION
  Report Type: 
  Country: None (occurrence: None)
  Receive Date: 20040127
  Receipt Date: 20040123
  Transmission Date: 20041129
  Serious: No
  Sender: FDA-Public Use
  Company Number: 2003182894DE

PATIENT
  Age: 80 Year
  Sex: Female
  Weight: 54 kg

DRUGS (6)
  1. CELEBREX [Suspect]
     Indication: MUSCULOSKELETAL PAIN
     Dosage: 200 MG, QD, ORAL
     Route: 048
  2. FARMITREXAT CS (METHOTREXATE) SOLUTION, STERILE [Suspect]
     Indication: MUSCULOSKELETAL PAIN
     Dates: end: 20030516
  3. DURAGESIC [Concomitant]
  4. TILIDINE (TILIDINE) [Concomitant]
  5. DECORTIN [Concomitant]
  6. PANTOZOL (PANTOPRAZOLE SODIUM) [Concomitant]

REACTIONS (14)
  - BLOOD LACTATE DEHYDROGENASE INCREASED [None]
  - BLOOD UREA INCREASED [None]
  - BODY TEMPERATURE INCREASED [None]
  - BONE MARROW TOXICITY [None]
  - BURNING SENSATION [None]
  - C-REACTIVE PROTEIN [None]
  - CIRCULATORY COLLAPSE [None]
  - GENERAL PHYSICAL HEALTH DETERIORATION [None]
  - GLOSSODYNIA [None]
  - HAEMOGLOBIN DECREASED [None]
  - ORAL DISCOMFORT [None]
  - PANCYTOPENIA [None]
  - PLATELET COUNT DECREASED [None]
  - SEPSIS [None]
